FAERS Safety Report 8380726-8 (Version None)
Quarter: 2012Q1

REPORT INFORMATION
  Report Type: 
  Country: None (occurrence: None)
  Receive Date: 20120323
  Receipt Date: 20110502
  Transmission Date: 20120608
  Serious: Yes (Other)
  Sender: FDA-Public Use
  Company Number: 163-21880-11040586

PATIENT
  Age: 71 Year
  Sex: Female
  Weight: 33.1 kg

DRUGS (2)
  1. REVLIMID [Suspect]
     Indication: MULTIPLE MYELOMA
     Dosage: 25 MG, 1 IN 1 D, PO, 15 MG, X 14 DAYS, PO
     Route: 048
     Dates: start: 20101227
  2. REVLIMID [Suspect]
     Indication: MULTIPLE MYELOMA
     Dosage: 25 MG, 1 IN 1 D, PO, 15 MG, X 14 DAYS, PO
     Route: 048
     Dates: start: 20110328

REACTIONS (2)
  - LUNG INFECTION [None]
  - DYSURIA [None]
